FAERS Safety Report 7991618-8 (Version None)
Quarter: 2011Q4

REPORT INFORMATION
  Report Type: 
  Country: None (occurrence: None)
  Receive Date: 20111219
  Receipt Date: 20111117
  Transmission Date: 20120403
  Serious: No
  Sender: FDA-Public Use
  Company Number: US-ALLERGAN-1115188US

PATIENT
  Sex: Male

DRUGS (6)
  1. PRASTERONE [Concomitant]
     Indication: SUPPLEMENTATION THERAPY
     Dosage: UNK
  2. LUMIGAN [Suspect]
     Indication: GLAUCOMA
     Dosage: 2 GTT, QPM
     Route: 047
  3. MSM [Concomitant]
     Indication: SUPPLEMENTATION THERAPY
     Dosage: UNK
  4. ALPHAGAN P [Suspect]
     Indication: GLAUCOMA
     Dosage: 2 GTT, BID
     Route: 047
  5. LEVOTHYROXINE SODIUM [Concomitant]
     Indication: THYROID DISORDER
     Dosage: UNK
  6. GLUCOSAMINE [Concomitant]
     Indication: SUPPLEMENTATION THERAPY
     Dosage: UNK

REACTIONS (1)
  - HYPOAESTHESIA [None]
